FAERS Safety Report 24443904 (Version 2)
Quarter: 2024Q4

REPORT INFORMATION
  Report Type: Report from Study
  Country: US (occurrence: US)
  Receive Date: 20241016
  Receipt Date: 20241017
  Transmission Date: 20250115
  Serious: No
  Sender: ROCHE
  Company Number: US-ROCHE-2616287

PATIENT
  Age: 53 Year
  Sex: Male

DRUGS (2)
  1. RITUXAN [Suspect]
     Active Substance: RITUXIMAB
     Indication: Demyelination
     Dosage: FORM STRENGTH:500 MG/ 50 ML AND DATE OF INFUSION WAS 13/DEC/2021
     Route: 042
  2. RITUXAN [Suspect]
     Active Substance: RITUXIMAB
     Indication: Neuromyelitis optica spectrum disorder

REACTIONS (2)
  - Off label use [Unknown]
  - No adverse event [Unknown]
